FAERS Safety Report 21457096 (Version 3)
Quarter: 2024Q2

REPORT INFORMATION
  Report Type: Spontaneous
  Country: US (occurrence: US)
  Receive Date: 20221014
  Receipt Date: 20240606
  Transmission Date: 20240715
  Serious: Yes (Other)
  Sender: FDA-Public Use
  Company Number: US-ROCHE-2944244

PATIENT
  Sex: Female
  Weight: 88.075 kg

DRUGS (17)
  1. CLONAZEPAM [Suspect]
     Active Substance: CLONAZEPAM
     Indication: Pain
     Dosage: 0.5 MG, DAILY
     Route: 048
     Dates: start: 2004
  2. OCREVUS [Suspect]
     Active Substance: OCRELIZUMAB
     Indication: Secondary progressive multiple sclerosis
     Dosage: TWICE A YEAR
     Route: 042
     Dates: start: 2020
  3. OCREVUS [Suspect]
     Active Substance: OCRELIZUMAB
     Indication: Secondary progressive multiple sclerosis
     Dosage: UNK, ONCE IN EVERY 6 MONTHS?YES, SUBSEQUENT DOSE ON 01/APR/2021, 18/APR/2022
     Route: 042
     Dates: start: 20210312
  4. BENADRYL [Suspect]
     Active Substance: DIPHENHYDRAMINE HYDROCHLORIDE
     Indication: Premedication
     Route: 048
     Dates: start: 2020
  5. GABAPENTIN [Concomitant]
     Active Substance: GABAPENTIN
     Indication: Pain
     Dosage: 300 MG, DAILY, BEDTIME
     Route: 048
     Dates: start: 2018
  6. DULOXETINE [Concomitant]
     Active Substance: DULOXETINE
     Indication: Pain
     Dosage: 60 MG, DAILY
     Route: 048
     Dates: start: 2018
  7. OXYBUTYNIN [Concomitant]
     Active Substance: OXYBUTYNIN\OXYBUTYNIN CHLORIDE
     Indication: Incontinence
     Dosage: 15 MG, BID
     Route: 048
     Dates: start: 2007
  8. PRAMIPEXOLE [Concomitant]
     Active Substance: PRAMIPEXOLE\PRAMIPEXOLE DIHYDROCHLORIDE
     Indication: Restless legs syndrome
     Dosage: 0.5 MG, BID
     Route: 048
     Dates: start: 2000
  9. TIZANIDINE [Concomitant]
     Active Substance: TIZANIDINE
     Indication: Pain
     Dosage: 2 MG, BID, USUALLY TAKES 1/DAY
     Route: 048
     Dates: start: 2018
  10. ESOMEPRAZOLE [Concomitant]
     Active Substance: ESOMEPRAZOLE
     Indication: Dyspepsia
     Dosage: 140 MG, DAILY
     Route: 048
     Dates: start: 202109
  11. SOLU-MEDROL [Concomitant]
     Active Substance: METHYLPREDNISOLONE SODIUM SUCCINATE
     Dosage: UNK
     Route: 042
  12. CYMBALTA [Concomitant]
     Active Substance: DULOXETINE HYDROCHLORIDE
  13. IBUPROFEN [Concomitant]
     Active Substance: IBUPROFEN
  14. MIRAPEX [Concomitant]
     Active Substance: PRAMIPEXOLE DIHYDROCHLORIDE
  15. OMEPRAZOLE [Concomitant]
     Active Substance: DONEPEZIL HYDROCHLORIDE\OMEPRAZOLE\OMEPRAZOLE MAGNESIUM
  16. VITAMIN B COMPLEX [Concomitant]
     Active Substance: CYANOCOBALAMIN\DEXPANTHENOL\NIACINAMIDE\PYRIDOXINE HYDROCHLORIDE\RIBOFLAVIN 5^-PHOSPHATE SODIUM\THIA
  17. ASCORBIC ACID [Concomitant]
     Active Substance: ASCORBIC ACID

REACTIONS (19)
  - Limb discomfort [Not Recovered/Not Resolved]
  - Hiatus hernia [Unknown]
  - Secondary progressive multiple sclerosis [Recovered/Resolved]
  - Dyspepsia [Unknown]
  - Visual impairment [Unknown]
  - Product use in unapproved indication [Unknown]
  - Incorrect product administration duration [Unknown]
  - Anxiety [Unknown]
  - Depression [Unknown]
  - Atrial fibrillation [Unknown]
  - Abdominal pain upper [Unknown]
  - Muscular weakness [Unknown]
  - Urinary incontinence [Unknown]
  - Temperature intolerance [Unknown]
  - Nausea [Not Recovered/Not Resolved]
  - Fatigue [Not Recovered/Not Resolved]
  - Impaired driving ability [Unknown]
  - Contusion [Unknown]
  - Hunger [Unknown]

NARRATIVE: CASE EVENT DATE: 20200101
